FAERS Safety Report 14613372 (Version 3)
Quarter: 2018Q1

REPORT INFORMATION
  Report Type: Spontaneous
  Country: AU (occurrence: AU)
  Receive Date: 20180308
  Receipt Date: 20180321
  Transmission Date: 20180509
  Serious: Yes (Other)
  Sender: FDA-Public Use
  Company Number: AU-SA-2018SA054946

PATIENT
  Age: 16 Month
  Sex: Male

DRUGS (1)
  1. FEXOFENADINE [Suspect]
     Active Substance: FEXOFENADINE\FEXOFENADINE HYDROCHLORIDE
     Indication: FOOD ALLERGY
     Route: 048

REACTIONS (6)
  - Product container issue [Unknown]
  - Pruritus [Unknown]
  - Hypersensitivity [Unknown]
  - Pain [Unknown]
  - Scratch [Unknown]
  - Haemorrhage subcutaneous [Unknown]
